FAERS Safety Report 19494745 (Version 1)
Quarter: 2021Q3

REPORT INFORMATION
  Report Type: Spontaneous
  Country: SI (occurrence: SI)
  Receive Date: 20210706
  Receipt Date: 20210706
  Transmission Date: 20211014
  Serious: Yes (Hospitalization, Other)
  Sender: FDA-Public Use
  Company Number: SI-LUPIN PHARMACEUTICALS INC.-2021-10891

PATIENT
  Age: 7 Decade
  Sex: Female

DRUGS (4)
  1. METHYLPREDNISOLONE. [Suspect]
     Active Substance: METHYLPREDNISOLONE
     Indication: RHEUMATOID ARTHRITIS
     Dosage: 2 MILLIGRAM, QOD (EVERY OTHER DAY)
     Route: 065
  2. RITUXIMAB. [Concomitant]
     Active Substance: RITUXIMAB
     Indication: RHEUMATOID ARTHRITIS
     Dosage: UNK (STOPPED)
     Route: 065
  3. TOFACITINIB [Suspect]
     Active Substance: TOFACITINIB
     Indication: RHEUMATOID ARTHRITIS
     Dosage: 5 MILLIGRAM, BID
     Route: 065
     Dates: start: 2018
  4. METHOTREXATE. [Suspect]
     Active Substance: METHOTREXATE
     Indication: RHEUMATOID ARTHRITIS
     Dosage: 10 MILLIGRAM EVERY WEEK
     Route: 065

REACTIONS (3)
  - Erythema [Unknown]
  - Bacteraemia [Recovered/Resolved]
  - Helicobacter infection [Recovered/Resolved]
